FAERS Safety Report 8607230-3 (Version None)
Quarter: 2012Q3

REPORT INFORMATION
  Report Type: 
  Country: None (occurrence: None)
  Receive Date: 20120821
  Receipt Date: 20120814
  Transmission Date: 20120928
  Serious: No
  Sender: FDA-Public Use
  Company Number: US-BIOGENIDEC-2012BI031522

PATIENT
  Sex: Female

DRUGS (1)
  1. AVONEX [Suspect]
     Indication: MULTIPLE SCLEROSIS
     Route: 030
     Dates: start: 20090419

REACTIONS (7)
  - MULTIPLE SCLEROSIS [None]
  - DEPRESSED MOOD [None]
  - APHASIA [None]
  - GAIT DISTURBANCE [None]
  - SPEECH DISORDER [None]
  - COORDINATION ABNORMAL [None]
  - MUSCLE SPASMS [None]
